FAERS Safety Report 9393555 (Version 2)
Quarter: 2013Q4

REPORT INFORMATION
  Report Type: Spontaneous
  Country: US (occurrence: US)
  Receive Date: 20130710
  Receipt Date: 20131003
  Transmission Date: 20140711
  Serious: Yes (Other)
  Sender: FDA-Public Use
  Company Number: US-BAYER-2013-083119

PATIENT
  Age: 27 Year
  Sex: Female
  Weight: 64.85 kg

DRUGS (4)
  1. BETASERON [Suspect]
     Indication: MULTIPLE SCLEROSIS
     Dosage: 0.25 MG, QOD
     Route: 058
     Dates: start: 2003
  2. ORTHO TRI-CYCLEN LO [Concomitant]
     Indication: CONTRACEPTION
     Dosage: UNK UNK, HS
  3. ADDERALL [Concomitant]
     Indication: FATIGUE
     Dosage: 30 MG, OM
     Dates: start: 2012
  4. BACLOFEN [Concomitant]
     Indication: MUSCLE SPASTICITY
     Dosage: 10 MG, HS
     Dates: start: 2012

REACTIONS (7)
  - Injection site necrosis [Not Recovered/Not Resolved]
  - Flushing [Recovered/Resolved]
  - Headache [Not Recovered/Not Resolved]
  - Influenza like illness [Not Recovered/Not Resolved]
  - Pain in extremity [Not Recovered/Not Resolved]
  - Injection site urticaria [Not Recovered/Not Resolved]
  - Injection site scar [Not Recovered/Not Resolved]
